FAERS Safety Report 20000408 (Version 2)
Quarter: 2021Q4

REPORT INFORMATION
  Report Type: Spontaneous
  Country: JP (occurrence: JP)
  Receive Date: 20211026
  Receipt Date: 20211228
  Transmission Date: 20220303
  Serious: Yes (Death, Other)
  Sender: FDA-Public Use
  Company Number: JP-TAKEDA-2021TJP106417

PATIENT
  Age: 6 Decade

DRUGS (1)
  1. ALUNBRIG [Suspect]
     Active Substance: BRIGATINIB
     Indication: Non-small cell lung cancer recurrent
     Dosage: 90 MILLIGRAM, QD
     Route: 048
     Dates: start: 20211007, end: 20211009

REACTIONS (4)
  - Pneumonia [Unknown]
  - Meningitis [Fatal]
  - Subarachnoid haemorrhage [Fatal]
  - Non-small cell lung cancer recurrent [Fatal]

NARRATIVE: CASE EVENT DATE: 20211014
